FAERS Safety Report 7003747-6 (Version None)
Quarter: 2010Q3

REPORT INFORMATION
  Report Type: 
  Country: None (occurrence: None)
  Receive Date: 20100917
  Receipt Date: 20100908
  Transmission Date: 20110219
  Serious: Yes (Death)
  Sender: FDA-Public Use
  Company Number: KV200900809

PATIENT
  Age: 52 Year
  Sex: Male

DRUGS (10)
  1. ISOSORBIDE MONONITRATE [Suspect]
     Indication: PRODUCT USED FOR UNKNOWN INDICATION
     Dosage: ORAL
     Route: 048
     Dates: start: 20070919, end: 20080921
  2. GLIPIZIDE (GLIPIZIDE) [Concomitant]
  3. KLOR-CON [Concomitant]
  4. FUROSEMIDE [Concomitant]
  5. VERAPAMIL [Concomitant]
  6. SPIRONOLACTONE [Concomitant]
  7. LISINOPRIL [Concomitant]
  8. METOPROLOL TARTRATE [Concomitant]
  9. ZOLPIDEM [Concomitant]
  10. COMBIVENT /01033501/ (IPRATROPIUM BROMIDE, SALBUTAMOL) [Concomitant]

REACTIONS (3)
  - ARRHYTHMIA [None]
  - CORONARY ARTERY DISEASE [None]
  - DIABETES MELLITUS [None]
